FAERS Safety Report 9728264 (Version 2)
Quarter: 2013Q4

REPORT INFORMATION
  Report Type: Spontaneous
  Country: US (occurrence: US)
  Receive Date: 20131204
  Receipt Date: 20131224
  Transmission Date: 20140711
  Serious: Yes (Hospitalization, Other)
  Sender: FDA-Public Use
  Company Number: US-LUNDBECK-DKLU1095738

PATIENT
  Age: 2 Year
  Sex: Female
  Weight: 12 kg

DRUGS (20)
  1. SABRIL (FOR ORAL SOLUTION) [Suspect]
     Indication: INFANTILE SPASMS
     Route: 048
     Dates: start: 20111019
  2. SABRIL (FOR ORAL SOLUTION) [Suspect]
     Indication: CONVULSION
     Route: 048
     Dates: start: 20131019, end: 201311
  3. SABRIL (FOR ORAL SOLUTION) [Suspect]
     Indication: EPILEPSY
  4. ONFI [Concomitant]
     Indication: EPILEPSY
  5. ONFI [Concomitant]
     Indication: EPILEPSY
  6. KEPPRA [Concomitant]
     Indication: PRODUCT USED FOR UNKNOWN INDICATION
  7. TOPIRAMATE [Concomitant]
     Indication: PRODUCT USED FOR UNKNOWN INDICATION
  8. LIORESAL [Concomitant]
     Indication: QUADRIPLEGIA
  9. LIORESAL [Concomitant]
  10. DIAZEPAM [Concomitant]
     Indication: QUADRIPLEGIA
     Route: 048
  11. CARNITOR SF [Concomitant]
     Indication: EPILEPSY
     Route: 048
  12. CARNITOR SF [Concomitant]
     Indication: EPILEPSY
  13. DEPAKOTE [Concomitant]
     Indication: EPILEPSY
  14. DEPAKOTE [Concomitant]
     Indication: EPILEPSY
  15. DEPAKOTE [Concomitant]
  16. DIASTAT ACUDIAL [Concomitant]
     Indication: EPILEPSY
     Route: 050
  17. DIASTAT ACUDIAL [Concomitant]
     Indication: EPILEPSY
  18. BANZEL [Concomitant]
     Indication: EPILEPSY
     Route: 048
  19. BANZEL [Concomitant]
     Indication: EPILEPSY
  20. PHENOBARBITAL [Concomitant]
     Indication: PRODUCT USED FOR UNKNOWN INDICATION

REACTIONS (10)
  - Respiratory disorder [Unknown]
  - Hypoxia [Unknown]
  - Pneumonia aspiration [Unknown]
  - Pneumonia [Unknown]
  - Convulsion [Unknown]
  - Screaming [Unknown]
  - Pain [Unknown]
  - Fatigue [Unknown]
  - Muscle spasms [Unknown]
  - Drug ineffective [Recovering/Resolving]
